FAERS Safety Report 20336418 (Version 1)
Quarter: 2022Q1

REPORT INFORMATION
  Report Type: Report from Study
  Country: NL (occurrence: NL)
  Receive Date: 20220114
  Receipt Date: 20220114
  Transmission Date: 20220423
  Serious: Yes (Other)
  Sender: FDA-Public Use
  Company Number: NL-AMGEN-NLDNI2022002828

PATIENT
  Age: 74 Year
  Sex: Male

DRUGS (1)
  1. AMG-510 [Suspect]
     Active Substance: AMG-510
     Indication: Non-small cell lung cancer
     Dosage: 120 MILLIGRAM
     Route: 065

REACTIONS (1)
  - Non-small cell lung cancer [Unknown]
